FAERS Safety Report 4964653-1 (Version None)
Quarter: 2006Q2

REPORT INFORMATION
  Report Type: 
  Country: None (occurrence: None)
  Receive Date: 20060406
  Receipt Date: 20050928
  Transmission Date: 20061013
  Serious: Yes (Life-Threatening, Hospitalization, Disabling, Other)
  Sender: FDA-Public Use
  Company Number: ZA-MERCK-0510ZAF00002

PATIENT
  Sex: Male

DRUGS (2)
  1. VIOXX [Suspect]
     Route: 048
     Dates: start: 19990101, end: 20010601
  2. VIOXX [Suspect]
     Route: 048
     Dates: start: 20010723, end: 20010801

REACTIONS (11)
  - ACUTE RESPIRATORY DISTRESS SYNDROME [None]
  - ARTHROPOD BITE [None]
  - BRAIN DAMAGE [None]
  - CEREBRAL HAEMORRHAGE [None]
  - DEEP VEIN THROMBOSIS [None]
  - HEADACHE [None]
  - HYPERNATRAEMIA [None]
  - HYPERTENSION [None]
  - MENTAL DISORDER [None]
  - RENAL FAILURE [None]
  - SEPSIS [None]
